FAERS Safety Report 7292506-5 (Version None)
Quarter: 2011Q1

REPORT INFORMATION
  Report Type: 
  Country: None (occurrence: None)
  Receive Date: 20110209
  Receipt Date: 20110209
  Transmission Date: 20110831
  Serious: Yes (Hospitalization)
  Sender: FDA-Public Use
  Company Number: None

PATIENT
  Sex: Female
  Weight: 56.3 kg

DRUGS (23)
  1. SORAFENIB 400 MG [Suspect]
     Indication: PANCREATIC CARCINOMA
     Dosage: 400 MG DAILY ORAL
     Route: 048
     Dates: start: 20101217, end: 20110206
  2. ASPIRIN [Concomitant]
  3. ERLOTINIB 100 MG [Suspect]
     Indication: PANCREATIC CARCINOMA
     Dosage: 100 MG DAILY ORAL
     Route: 048
     Dates: start: 20101217, end: 20110206
  4. OXYCODONE [Concomitant]
  5. MULTI-VITAMIN [Concomitant]
  6. MIRTAZAPINE [Concomitant]
  7. PAXIL [Concomitant]
  8. OXYCONTIN [Concomitant]
  9. LOPRESSOR [Concomitant]
  10. ZYRTEC [Concomitant]
  11. FISH OIL [Concomitant]
  12. REGLAN [Concomitant]
  13. VITAMIN B-12 [Concomitant]
  14. PREVACID [Concomitant]
  15. ZOFRAN [Concomitant]
  16. CRESTOR [Concomitant]
  17. VITAMIN D [Concomitant]
  18. LAMIR [Concomitant]
  19. CARAFATE [Concomitant]
  20. NEXIUM [Concomitant]
  21. COLACE [Concomitant]
  22. CARAFATE [Concomitant]
  23. CREON [Concomitant]

REACTIONS (1)
  - ABDOMINAL PAIN UPPER [None]
